FAERS Safety Report 4339549-9 (Version None)
Quarter: 2004Q2

REPORT INFORMATION
  Report Type: 
  Country: None (occurrence: None)
  Receive Date: 20040412
  Receipt Date: 20040329
  Transmission Date: 20050107
  Serious: Yes (Hospitalization, Other)
  Sender: FDA-Public Use
  Company Number: 233804

PATIENT
  Sex: 0

DRUGS (3)
  1. NOVORAPID PENFILL        (INSULIN ASPART) [Suspect]
     Indication: DIABETES MELLITUS INSULIN-DEPENDENT
     Dosage: 56 IU, QD, INTRAUTERINE
     Route: 064
     Dates: start: 20030415
  2. PROTAPHANE PENFILL HM (GE) 3 ML (INSULIN HUMAN) [Concomitant]
     Route: 064
  3. MULTI-VITAMIN [Concomitant]
     Route: 064

REACTIONS (2)
  - HYPOGLYCAEMIA NEONATAL [None]
  - MATERNAL DRUGS AFFECTING FOETUS [None]
